FAERS Safety Report 9893093 (Version 1)
Quarter: 2014Q1

REPORT INFORMATION
  Report Type: Report from Study
  Country: AU (occurrence: AU)
  Receive Date: 20140213
  Receipt Date: 20140213
  Transmission Date: 20141002
  Serious: Yes (Other)
  Sender: FDA-Public Use
  Company Number: AU-BRISTOL-MYERS SQUIBB COMPANY-20149993

PATIENT
  Age: 69 Year
  Sex: Female

DRUGS (4)
  1. ORENCIA [Suspect]
     Indication: RHEUMATOID ARTHRITIS
     Route: 042
     Dates: start: 20100310, end: 20130125
  2. METHOTREXATE [Concomitant]
  3. FOLIC ACID [Concomitant]
  4. OXYCONTIN [Concomitant]

REACTIONS (1)
  - Dementia [Unknown]
